FAERS Safety Report 9219160 (Version 1)
Quarter: 2013Q1

REPORT INFORMATION
  Report Type: Spontaneous
  Country: US (occurrence: None)
  Receive Date: 20120830
  Receipt Date: 20120830
  Transmission Date: 20140127
  Serious: Yes (Other)
  Sender: FDA-Public Use
  Company Number: PHEH2012US008362

PATIENT
  Sex: Male

DRUGS (1)
  1. SANDOSTATIN LAR DEPOT (OCTREOTIDE WITH POLY(D L-LACTIDE-CO-GLYCOLIDE)) SUSPENSION [Suspect]
     Indication: METASTATIC CARCINOID TUMOUR

REACTIONS (7)
  - Neoplasm malignant [None]
  - Blood chromogranin A increased [None]
  - Weight increased [None]
  - Pain [None]
  - Diarrhoea [None]
  - Vomiting [None]
  - Nausea [None]
